FAERS Safety Report 16591121 (Version 1)
Quarter: 2019Q3

REPORT INFORMATION
  Report Type: Spontaneous
  Country: US (occurrence: US)
  Receive Date: 20190718
  Receipt Date: 20190718
  Transmission Date: 20191004
  Serious: No
  Sender: FDA-Public Use
  Company Number: US-SWEDISH ORPHAN BIOVITRUM-2018US0219

PATIENT
  Age: 68 Year
  Sex: Female
  Weight: 77.1 kg

DRUGS (12)
  1. KINERET [Suspect]
     Active Substance: ANAKINRA
     Indication: RHEUMATOID ARTHRITIS
     Dates: start: 201603
  2. HYDROCODONE [Concomitant]
     Active Substance: HYDROCODONE
  3. XELJANZ [Suspect]
     Active Substance: TOFACITINIB CITRATE
     Indication: RHEUMATOID ARTHRITIS
     Route: 048
     Dates: start: 201712
  4. PREDNISONE. [Concomitant]
     Active Substance: PREDNISONE
  5. ACETAMIN [Concomitant]
     Active Substance: ACETAMINOPHEN
  6. MELOXICAM. [Concomitant]
     Active Substance: MELOXICAM
  7. CALCIUM WITH VITAMIN D [Concomitant]
     Active Substance: CALCIUM\VITAMIN D
     Dates: start: 201805
  8. METHOTREXATE. [Suspect]
     Active Substance: METHOTREXATE
  9. HUMIRA [Suspect]
     Active Substance: ADALIMUMAB
     Indication: RHEUMATOID ARTHRITIS
     Dates: start: 201204
  10. ROSUVASTATIN CALCIUM. [Concomitant]
     Active Substance: ROSUVASTATIN CALCIUM
     Dates: start: 20180614
  11. ALENDRONATE SODIUM. [Concomitant]
     Active Substance: ALENDRONATE SODIUM
     Dates: start: 201805
  12. ENBREL [Suspect]
     Active Substance: ETANERCEPT
     Indication: RHEUMATOID ARTHRITIS
     Dates: start: 201304, end: 201310

REACTIONS (3)
  - Blood test abnormal [Unknown]
  - Swelling [Unknown]
  - Drug ineffective [Recovered/Resolved]

NARRATIVE: CASE EVENT DATE: 201603
